FAERS Safety Report 18648255 (Version 23)
Quarter: 2022Q1

REPORT INFORMATION
  Report Type: Spontaneous
  Country: GB (occurrence: GB)
  Receive Date: 20201222
  Receipt Date: 20220322
  Transmission Date: 20220423
  Serious: Yes (Life-Threatening, Hospitalization, Other)
  Sender: FDA-Public Use
  Company Number: None

PATIENT
  Age: 64 Year
  Sex: Male

DRUGS (9)
  1. CLOPIDOGREL [Suspect]
     Active Substance: CLOPIDOGREL BISULFATE
     Indication: Transient ischaemic attack
     Route: 048
     Dates: start: 202011
  2. CLOPIDOGREL [Suspect]
     Active Substance: CLOPIDOGREL BISULFATE
     Indication: Transient ischaemic attack
     Dosage: 75 MG, QD
     Route: 048
  3. CLOPIDOGREL [Suspect]
     Active Substance: CLOPIDOGREL BISULFATE
     Indication: Product used for unknown indication
     Dosage: 75 MILLIGRAM, QD
     Route: 048
  4. CLOZARIL [Suspect]
     Active Substance: CLOZAPINE
     Indication: Schizophrenia
     Dosage: 75 MG, 1X/DAY
     Route: 048
     Dates: start: 20090819, end: 202101
  5. FOLIC ACID [Suspect]
     Active Substance: FOLIC ACID
     Indication: Blood folate decreased
     Dosage: 5 MG, 3X/DAY
     Route: 048
  6. PROCYCLIDINE [Suspect]
     Active Substance: PROCYCLIDINE
     Indication: Extrapyramidal disorder
     Dosage: 15 MG, QD (5 MILLIGRAM, TID)
     Route: 048
  7. SERTRALINE [Suspect]
     Active Substance: SERTRALINE HYDROCHLORIDE
     Indication: Depressed mood
     Route: 048
  8. SIMVASTATIN [Suspect]
     Active Substance: SIMVASTATIN
     Indication: Hyperlipidaemia
     Dosage: 40 MG, 1X/DAY
     Route: 048
  9. THIAMINE [Suspect]
     Active Substance: THIAMINE
     Indication: Vitamin B complex deficiency
     Dosage: 300 MG, DAILY
     Route: 048

REACTIONS (7)
  - Fall [Unknown]
  - Product dose omission issue [Unknown]
  - Product use issue [Unknown]
  - Hospitalisation [Unknown]
  - Off label use [Unknown]
  - Medication error [Unknown]
  - Intentional product misuse [Unknown]

NARRATIVE: CASE EVENT DATE: 20201106
